FAERS Safety Report 13532017 (Version 1)
Quarter: 2017Q2

REPORT INFORMATION
  Report Type: Spontaneous
  Country: US (occurrence: US)
  Receive Date: 20170510
  Receipt Date: 20170510
  Transmission Date: 20170830
  Serious: No
  Sender: FDA-Public Use
  Company Number: US-ASTRAZENECA-2017SE48295

PATIENT
  Age: 19645 Day
  Sex: Male
  Weight: 120.2 kg

DRUGS (2)
  1. DUONEB [Concomitant]
     Active Substance: ALBUTEROL SULFATE\IPRATROPIUM BROMIDE
     Dosage: ONCE DAILY OR TWO TIMES A DAY
  2. TUDORZA PRESSAIR [Suspect]
     Active Substance: ACLIDINIUM BROMIDE
     Indication: CHRONIC OBSTRUCTIVE PULMONARY DISEASE
     Route: 055
     Dates: start: 2016

REACTIONS (5)
  - Circumstance or information capable of leading to device use error [Unknown]
  - Drug ineffective [Unknown]
  - Oxygen saturation decreased [Unknown]
  - Device use issue [Unknown]
  - Dyspnoea [Unknown]

NARRATIVE: CASE EVENT DATE: 20170501
